FAERS Safety Report 11349617 (Version 2)
Quarter: 2015Q3

REPORT INFORMATION
  Report Type: Spontaneous
  Country: US (occurrence: US)
  Receive Date: 20150807
  Receipt Date: 20150911
  Transmission Date: 20151125
  Serious: Yes (Other)
  Sender: FDA-Public Use
  Company Number: US-BAYER-2015-391441

PATIENT
  Age: 25 Year
  Sex: Female

DRUGS (1)
  1. MIRENA [Suspect]
     Active Substance: LEVONORGESTREL
     Indication: CONTRACEPTION
     Dosage: 20 MCG/24HR, CONT
     Route: 015
     Dates: start: 20120303, end: 20150702

REACTIONS (16)
  - Libido decreased [None]
  - Peripheral swelling [None]
  - Device deployment issue [None]
  - Abdominal pain lower [None]
  - Abdominal distension [None]
  - Emotional distress [None]
  - General physical health deterioration [None]
  - Abdominal pain [None]
  - Feeling hot [None]
  - Post procedural discomfort [None]
  - Pain [None]
  - Uterine enlargement [None]
  - Device dislocation [None]
  - Procedural pain [None]
  - Endometrial hyperplasia [None]
  - Menometrorrhagia [None]

NARRATIVE: CASE EVENT DATE: 2015
